FAERS Safety Report 13353744 (Version 1)
Quarter: 2017Q1

REPORT INFORMATION
  Report Type: Report from Study
  Country: IT (occurrence: IT)
  Receive Date: 20170321
  Receipt Date: 20170321
  Transmission Date: 20170429
  Serious: Yes (Death)
  Sender: FDA-Public Use
  Company Number: IT-ACCORD-049224

PATIENT
  Sex: Male

DRUGS (5)
  1. ACTINOMYCIN D [Suspect]
     Active Substance: DACTINOMYCIN
     Indication: GERM CELL CANCER
     Dosage: 0.5MG ON DAYS 1 AND 2
     Route: 040
  2. VINCRISTINE [Suspect]
     Active Substance: VINCRISTINE
     Indication: GERM CELL CANCER
     Dosage: 1 MG/M^2 ON DAY 8
  3. ETOPOSIDE. [Suspect]
     Active Substance: ETOPOSIDE
     Indication: GERM CELL CANCER
     Dosage: 100 MG/M^2 IN 250ML OF NORMAL SALINE OVER 1 HOUR
  4. METHOTREXATE. [Suspect]
     Active Substance: METHOTREXATE
     Indication: GERM CELL CANCER
     Dosage: 100 MG/M^2 IN 100ML OF NORMAL SALINE OVER 15 MIUTES
  5. CYCLOPHOSPHAMIDE/CYCLOPHOSPHAMIDE MONOHYDRATE [Suspect]
     Active Substance: CYCLOPHOSPHAMIDE
     Indication: GERM CELL CANCER
     Dosage: 600 MG/M^2 IN 250ML OF NORMAL SALINE OVER 30 MINUTES

REACTIONS (1)
  - Cerebral haemorrhage [Fatal]
